FAERS Safety Report 14951292 (Version 1)
Quarter: 2018Q2

REPORT INFORMATION
  Report Type: Spontaneous
  Country: US (occurrence: US)
  Receive Date: 20180509
  Receipt Date: 20180509
  Transmission Date: 20180711
  Serious: Yes (Death)
  Sender: FDA-Public Use
  Company Number: None

PATIENT
  Age: 33 Year
  Sex: Male

DRUGS (4)
  1. RAMIPRIL 2.5 MG [Suspect]
     Active Substance: RAMIPRIL
     Indication: DIABETES MELLITUS
     Route: 048
     Dates: start: 20140109, end: 20180508
  2. LANTUS SOLOSTAR [Concomitant]
     Active Substance: INSULIN GLARGINE
  3. FLUORIDE [Concomitant]
     Active Substance: SODIUM FLUORIDE
  4. CREON [Concomitant]
     Active Substance: PANCRELIPASE AMYLASE\PANCRELIPASE LIPASE\PANCRELIPASE PROTEASE

REACTIONS (1)
  - Death [None]

NARRATIVE: CASE EVENT DATE: 20180508
